FAERS Safety Report 9867298 (Version 2)
Quarter: 2014Q1

REPORT INFORMATION
  Report Type: Spontaneous
  Country: US (occurrence: US)
  Receive Date: 20140204
  Receipt Date: 20140204
  Transmission Date: 20141002
  Serious: Yes (Other)
  Sender: FDA-Public Use
  Company Number: US-ELI_LILLY_AND_COMPANY-US201310004310

PATIENT
  Age: 85 Year
  Sex: Male

DRUGS (5)
  1. HUMALOG 25% LISPRO, 75% NPL [Suspect]
     Indication: PRODUCT USED FOR UNKNOWN INDICATION
     Route: 065
  2. AVODART [Concomitant]
     Dosage: .5 MG, UNK
  3. WARFARIN [Concomitant]
     Dosage: 5 MG, UNK
  4. LOVASTATIN [Concomitant]
     Dosage: 40 MG, UNK
  5. LISINOPRIL [Concomitant]

REACTIONS (2)
  - Femur fracture [Unknown]
  - Infection [Recovering/Resolving]
